FAERS Safety Report 5976229-8 (Version None)
Quarter: 2008Q4

REPORT INFORMATION
  Report Type: 
  Country: None (occurrence: None)
  Receive Date: 20081202
  Receipt Date: 20081127
  Transmission Date: 20090506
  Serious: Yes (Hospitalization)
  Sender: FDA-Public Use
  Company Number: AU-ASTRAZENECA-2004AP02189

PATIENT
  Age: 23334 Day
  Sex: Male

DRUGS (37)
  1. ATENOLOL [Suspect]
     Indication: HYPERTENSION
     Route: 048
     Dates: start: 20040223, end: 20040223
  2. PLACEBO [Suspect]
     Indication: RENAL FAILURE CHRONIC
     Route: 048
     Dates: start: 20030811, end: 20040108
  3. VITAMIN B FORTE [Concomitant]
     Indication: ROUTINE HEALTH MAINTENANCE
     Dosage: STARTED } 12 MONTHS PRIOR TO STUDY START
     Route: 048
  4. FOLIC ACID [Concomitant]
     Indication: RENAL FAILURE CHRONIC
     Dosage: STARTED } 12 MONTHS PRIOR TO STUDY START
     Route: 048
  5. CALCITRIOL [Concomitant]
     Indication: RENAL DISORDER
     Dosage: STARTED } 12 MONTHS PRIOR TO STUDY START
     Route: 048
  6. PERIACTIN [Concomitant]
     Indication: HEADACHE
     Route: 048
     Dates: start: 20030101
  7. PANAMAX [Concomitant]
     Indication: HEADACHE
     Route: 048
     Dates: start: 20030630
  8. SLOW-K [Concomitant]
     Indication: HYPOKALAEMIA
     Route: 048
     Dates: start: 20040112, end: 20040223
  9. FERROGRADUMATE [Concomitant]
     Indication: ANAEMIA
     Route: 048
     Dates: start: 20040112
  10. PRAZSOIN HCL [Concomitant]
     Indication: HYPERTENSION
     Route: 048
     Dates: start: 20040114
  11. POTASSIUM CHLORIDE [Concomitant]
     Route: 048
     Dates: start: 20040202
  12. RAMIPRIL [Concomitant]
     Indication: HYPERTENSION
     Route: 048
     Dates: start: 20040217, end: 20040223
  13. NITROGLYCERIN [Concomitant]
     Indication: CHEST PAIN
     Route: 048
     Dates: start: 20040217
  14. DILTIAZEM [Concomitant]
     Indication: RENAL TRANSPLANT
     Route: 048
     Dates: start: 20040110, end: 20040223
  15. LASIX [Concomitant]
     Indication: RENAL TRANSPLANT
     Route: 048
     Dates: start: 20040116, end: 20040223
  16. RANATIDINE [Concomitant]
     Indication: RENAL TRANSPLANT
     Route: 048
     Dates: start: 20040110
  17. NILSTAT [Concomitant]
     Indication: RENAL TRANSPLANT
     Route: 048
     Dates: start: 20040110, end: 20040213
  18. AMPHOTERICIN B [Concomitant]
     Indication: RENAL TRANSPLANT
     Route: 048
     Dates: start: 20040110
  19. VALTREX [Concomitant]
     Indication: RENAL TRANSPLANT
     Route: 048
     Dates: start: 20040110
  20. PREDNISOLONE [Concomitant]
     Indication: RENAL TRANSPLANT
     Route: 048
     Dates: start: 20040111
  21. MYCOPHENOLATE MOFETIL [Concomitant]
     Indication: RENAL TRANSPLANT
     Route: 048
     Dates: start: 20040109
  22. CYCLOSPORINE [Concomitant]
     Indication: RENAL TRANSPLANT
     Route: 048
     Dates: start: 20040110
  23. SIMULECT [Concomitant]
     Indication: RENAL TRANSPLANT
     Route: 042
     Dates: start: 20040109
  24. METHYLPREDNISOLONE 16MG TAB [Concomitant]
     Indication: RENAL TRANSPLANT
     Route: 042
     Dates: start: 20040109, end: 20040110
  25. PHENERGAN HCL [Concomitant]
     Indication: RENAL TRANSPLANT
     Route: 042
     Dates: start: 20040114
  26. ACETAMINOPHEN [Concomitant]
     Indication: RENAL FAILURE CHRONIC
     Route: 048
     Dates: start: 20040112, end: 20040112
  27. ACETAMINOPHEN [Concomitant]
     Indication: RENAL TRANSPLANT
     Route: 048
     Dates: start: 20040112, end: 20040112
  28. MOVICOL [Concomitant]
     Indication: RENAL TRANSPLANT
     Route: 048
     Dates: start: 20040111, end: 20040111
  29. COLOXYL AND SENNA [Concomitant]
     Indication: RENAL TRANSPLANT
     Route: 048
     Dates: start: 20040109
  30. LACTULOSE [Concomitant]
     Indication: RENAL TRANSPLANT
     Route: 048
     Dates: start: 20040109
  31. MAGMIN [Concomitant]
     Indication: RENAL TRANSPLANT
     Route: 048
     Dates: start: 20040114, end: 20040220
  32. FERRUM H [Concomitant]
     Indication: ANAEMIA
     Route: 042
     Dates: start: 20040113, end: 20040113
  33. AUGMENTUM DUO FORTE [Concomitant]
     Indication: RENAL TRANSPLANT
     Route: 048
     Dates: start: 20040115, end: 20040125
  34. CALTRATE [Concomitant]
     Indication: RENAL FAILURE CHRONIC
     Route: 048
     Dates: start: 20040118
  35. CALTRATE [Concomitant]
     Indication: RENAL TRANSPLANT
     Route: 048
     Dates: start: 20040118
  36. NORFLOXACIN [Concomitant]
     Indication: PYREXIA
     Route: 048
     Dates: start: 20040121, end: 20040202
  37. BACTRIM [Concomitant]
     Indication: RENAL TRANSPLANT
     Route: 048
     Dates: start: 20040213

REACTIONS (3)
  - BRADYCARDIA [None]
  - HYPOTENSION [None]
  - LOSS OF CONSCIOUSNESS [None]
